FAERS Safety Report 21257510 (Version 2)
Quarter: 2022Q3

REPORT INFORMATION
  Report Type: Spontaneous
  Country: IT (occurrence: IT)
  Receive Date: 20220826
  Receipt Date: 20220916
  Transmission Date: 20221027
  Serious: Yes (Life-Threatening, Hospitalization, Other)
  Sender: FDA-Public Use
  Company Number: None

PATIENT
  Age: 88 Year
  Sex: Male
  Weight: 77 kg

DRUGS (6)
  1. SOTALOL [Suspect]
     Active Substance: SOTALOL
     Indication: Product used for unknown indication
  2. OLMESARTAN MEDOXOMIL [Suspect]
     Active Substance: OLMESARTAN MEDOXOMIL
     Indication: Hypertension
  3. COMIRNATY [Suspect]
     Active Substance: TOZINAMERAN
     Indication: COVID-19 immunisation
     Dosage: 1 DF
     Dates: start: 20210312, end: 20210312
  4. COMIRNATY [Suspect]
     Active Substance: TOZINAMERAN
     Dosage: 1 DF
     Dates: start: 20210219, end: 20210219
  5. COUMADIN [Suspect]
     Active Substance: WARFARIN SODIUM
     Indication: Product used for unknown indication
     Route: 065
  6. SPIKEVAX [Suspect]
     Active Substance: ELASOMERAN
     Indication: COVID-19 immunisation
     Dosage: (EX COVID-19 VACCINE MODERNA), 1 DF
     Dates: start: 20211216, end: 20211216

REACTIONS (4)
  - Monoclonal B-cell lymphocytosis [Not Recovered/Not Resolved]
  - Computerised tomogram abnormal [Unknown]
  - Autoimmune haemolytic anaemia [Not Recovered/Not Resolved]
  - Squamous cell carcinoma [Recovering/Resolving]

NARRATIVE: CASE EVENT DATE: 20220101
